FAERS Safety Report 15757924 (Version 1)
Quarter: 2018Q4

REPORT INFORMATION
  Report Type: Spontaneous
  Country: ES (occurrence: ES)
  Receive Date: 20181225
  Receipt Date: 20181225
  Transmission Date: 20190205
  Serious: Yes (Life-Threatening, Hospitalization)
  Sender: FDA-Public Use
  Company Number: ES-ACCORD-097548

PATIENT
  Age: 14 Month
  Sex: Male
  Weight: 7 kg

DRUGS (2)
  1. FUROSEMIDE. [Suspect]
     Active Substance: FUROSEMIDE
     Indication: PATENT DUCTUS ARTERIOSUS
     Route: 048
     Dates: start: 20171207, end: 20171219
  2. FUROSEMIDE. [Concomitant]
     Active Substance: FUROSEMIDE
     Indication: PATENT DUCTUS ARTERIOSUS
     Route: 048
     Dates: start: 201711, end: 20171219

REACTIONS (2)
  - Alkalosis hypochloraemic [Recovered/Resolved]
  - Off label use [Unknown]

NARRATIVE: CASE EVENT DATE: 20171218
